FAERS Safety Report 16342491 (Version 4)
Quarter: 2020Q4

REPORT INFORMATION
  Report Type: Spontaneous
  Country: CA (occurrence: CA)
  Receive Date: 20190522
  Receipt Date: 20201216
  Transmission Date: 20210113
  Serious: Yes (Other)
  Sender: FDA-Public Use
  Company Number: CA-PFIZER INC-2019211491

PATIENT
  Age: 61 Year
  Sex: Female

DRUGS (4)
  1. CABERGOLINE. [Suspect]
     Active Substance: CABERGOLINE
     Dosage: 0.5 MG, 2X/WEEK
  2. SANDOSTATIN [Concomitant]
     Active Substance: OCTREOTIDE ACETATE
     Dosage: 30MG EVERY (Q) 3 WEEKS
     Dates: start: 2020
  3. CORTISOL [CORTISONE ACETATE] [Concomitant]
     Dosage: 10 MG, 3X/DAY
     Dates: start: 202008
  4. SANDOSTATIN [Concomitant]
     Active Substance: OCTREOTIDE ACETATE
     Dosage: UNK

REACTIONS (11)
  - Body temperature increased [Not Recovered/Not Resolved]
  - Trigeminal neuralgia [Unknown]
  - Laryngeal oedema [Not Recovered/Not Resolved]
  - Cerebrospinal fluid leakage [Unknown]
  - Brain neoplasm [Unknown]
  - Soft tissue swelling [Not Recovered/Not Resolved]
  - Pituitary-dependent Cushing^s syndrome [Unknown]
  - Blood pressure systolic increased [Not Recovered/Not Resolved]
  - Peripheral swelling [Not Recovered/Not Resolved]
  - Hyperhidrosis [Not Recovered/Not Resolved]
  - Insulin-like growth factor increased [Unknown]

NARRATIVE: CASE EVENT DATE: 201902
